FAERS Safety Report 12583140 (Version 1)
Quarter: 2016Q3

REPORT INFORMATION
  Report Type: Spontaneous
  Country: MA (occurrence: MA)
  Receive Date: 20160722
  Receipt Date: 20160722
  Transmission Date: 20161109
  Serious: Yes (Other)
  Sender: FDA-Public Use
  Company Number: PHHY2016MA095998

PATIENT
  Sex: Male

DRUGS (3)
  1. CICLOSPORIN [Suspect]
     Active Substance: CYCLOSPORINE
     Indication: FOETAL EXPOSURE DURING PREGNANCY
     Route: 064
  2. PREDNISOLONE. [Suspect]
     Active Substance: PREDNISOLONE
     Indication: FOETAL EXPOSURE DURING PREGNANCY
     Route: 064
  3. ACETYLSALICYLIC ACID [Suspect]
     Active Substance: ASPIRIN
     Indication: FOETAL EXPOSURE DURING PREGNANCY
     Dosage: MATERNAL DOSE (100 MG/DAY), 21ST TO 34 WEEKS
     Route: 064

REACTIONS (2)
  - Foetal exposure during pregnancy [Unknown]
  - Premature baby [Unknown]
